FAERS Safety Report 4990199-0 (Version None)
Quarter: 2006Q2

REPORT INFORMATION
  Report Type: 
  Country: None (occurrence: None)
  Receive Date: 20060503
  Receipt Date: 20051026
  Transmission Date: 20061013
  Serious: Yes (Hospitalization)
  Sender: FDA-Public Use
  Company Number: US-MERCK-0510USA09452

PATIENT
  Age: 59 Year
  Sex: Male
  Weight: 107 kg

DRUGS (19)
  1. VIOXX [Suspect]
     Indication: ARTHRITIS
     Route: 048
     Dates: start: 20000710, end: 20040921
  2. ATACAND [Concomitant]
     Indication: HYPERTENSION
     Route: 065
     Dates: start: 20000301
  3. HYDROCHLOROTHIAZIDE AND TRIAMTERENE [Concomitant]
     Indication: HYPERTENSION
     Route: 065
     Dates: start: 20000119
  4. ASPIRIN [Concomitant]
     Indication: PROPHYLAXIS
     Route: 065
     Dates: start: 20020308
  5. PLAVIX [Concomitant]
     Indication: PROPHYLAXIS
     Route: 065
     Dates: start: 20020308
  6. ZOCOR [Concomitant]
     Indication: BLOOD CHOLESTEROL INCREASED
     Route: 048
     Dates: start: 20000601, end: 20050715
  7. PERCOCET [Concomitant]
     Indication: ARTHRITIS
     Route: 065
     Dates: start: 20010606
  8. OXYCODONE [Concomitant]
     Indication: ARTHRITIS
     Route: 065
     Dates: start: 20010814
  9. MOBIC [Concomitant]
     Route: 065
     Dates: start: 20050105
  10. ALLOPURINOL [Concomitant]
     Indication: GOUT
     Route: 065
  11. NORVASC [Concomitant]
     Route: 065
     Dates: start: 20000701, end: 20050412
  12. XANAX [Concomitant]
     Route: 065
  13. PRILOSEC [Concomitant]
     Route: 048
  14. LEVAQUIN [Concomitant]
     Route: 065
  15. AVELOX [Concomitant]
     Route: 065
  16. METFORMIN [Concomitant]
     Route: 065
  17. POTASSIUM CHLORIDE [Concomitant]
     Route: 065
  18. PROTONIX [Concomitant]
     Route: 065
  19. DOXAZOSIN MESYLATE [Concomitant]
     Route: 065
     Dates: start: 20050213, end: 20050715

REACTIONS (5)
  - CEREBROVASCULAR ACCIDENT [None]
  - ERECTILE DYSFUNCTION [None]
  - HAEMORRHAGE [None]
  - HYPOAESTHESIA [None]
  - POLYTRAUMATISM [None]
